FAERS Safety Report 8045380-3 (Version None)
Quarter: 2012Q1

REPORT INFORMATION
  Report Type: 
  Country: None (occurrence: None)
  Receive Date: 20120113
  Receipt Date: 20120104
  Transmission Date: 20120608
  Serious: Yes (Hospitalization)
  Sender: FDA-Public Use
  Company Number: FI-PFIZER INC-2012002972

PATIENT
  Age: 49 Year
  Sex: Female

DRUGS (4)
  1. SUNITINIB MALATE [Suspect]
     Indication: RENAL CELL CARCINOMA
     Dosage: 50 MG, 1X/DAY
     Route: 048
     Dates: start: 20110413, end: 20110621
  2. PAZOPANIB [Suspect]
     Dosage: 400 MG, 1X/DAY
     Route: 048
     Dates: start: 20111222
  3. PAZOPANIB [Suspect]
     Dosage: 800 MG, 1X/DAY
     Route: 048
     Dates: start: 20110706
  4. PAZOPANIB [Suspect]
     Indication: RENAL CELL CARCINOMA
     Dosage: 800 MG, 1X/DAY
     Route: 048
     Dates: start: 20110119, end: 20110330

REACTIONS (1)
  - ABDOMINAL ABSCESS [None]
